FAERS Safety Report 5592915-6 (Version None)
Quarter: 2008Q1

REPORT INFORMATION
  Report Type: 
  Country: None (occurrence: None)
  Receive Date: 20080116
  Receipt Date: 20080109
  Transmission Date: 20080703
  Serious: Yes (Hospitalization)
  Sender: FDA-Public Use
  Company Number: GB-NOVOPROD-270947

PATIENT
  Sex: Female

DRUGS (11)
  1. NOVOLOG MIX 70/30 [Suspect]
     Indication: INSULIN-REQUIRING TYPE 2 DIABETES MELLITUS
     Dates: start: 20050919
  2. NOVORAPID FLEXPEN [Suspect]
     Indication: INSULIN-REQUIRING TYPE 2 DIABETES MELLITUS
  3. PARACETAMOL [Concomitant]
     Dosage: 4 G, QD
     Route: 048
  4. CODEINE PHOSPHATE [Concomitant]
     Dosage: 60 MG, QD
     Route: 048
     Dates: start: 20070207
  5. PERINDOPRIL [Concomitant]
     Dosage: 6 MG, QD
     Route: 048
     Dates: start: 20060106
  6. BENDROFLUAZIDE [Concomitant]
     Dosage: 2.5 MG, QD
     Route: 048
     Dates: start: 20011219
  7. METFORMIN HCL [Concomitant]
     Dosage: 1 G, QD
     Route: 048
     Dates: start: 20040727
  8. LERCANIDIPINE [Concomitant]
     Dosage: 20 MG, QD
     Route: 048
     Dates: start: 20000214
  9. CIMETIDINE [Concomitant]
     Dosage: 800 MEQ, QD
     Route: 048
     Dates: start: 20000830
  10. SIMVASTATIN [Concomitant]
     Dosage: 40 MG, UNK
     Route: 048
     Dates: start: 20030826
  11. BECLOMETHASONE DIPROPIONATE [Concomitant]
     Dosage: 1000 UG, UNK
     Route: 055
     Dates: start: 20020228

REACTIONS (1)
  - HIP FRACTURE [None]
